FAERS Safety Report 6093320-9 (Version None)
Quarter: 2009Q1

REPORT INFORMATION
  Report Type: 
  Country: None (occurrence: None)
  Receive Date: 20090220
  Receipt Date: 20090209
  Transmission Date: 20090719
  Serious: Yes (Hospitalization)
  Sender: FDA-Public Use
  Company Number: GXKR2009DE01245

PATIENT
  Age: 40 Year
  Sex: Female

DRUGS (1)
  1. TRIAMCINOLONE [Suspect]
     Indication: NECK PAIN
     Dosage: EPIDURAL
     Route: 008

REACTIONS (4)
  - CEREBELLAR SYNDROME [None]
  - PROCEDURAL COMPLICATION [None]
  - SPINAL ARTERY EMBOLISM [None]
  - SPINAL CORD ISCHAEMIA [None]
